FAERS Safety Report 9216013 (Version 2)
Quarter: 2013Q2

REPORT INFORMATION
  Report Type: Spontaneous
  Country: US (occurrence: US)
  Receive Date: 20130408
  Receipt Date: 20130517
  Transmission Date: 20140414
  Serious: Yes (Hospitalization)
  Sender: FDA-Public Use
  Company Number: US-JNJFOC-20130305909

PATIENT
  Age: 55 Year
  Sex: Female
  Weight: 79.38 kg

DRUGS (11)
  1. INVEGA SUSTENNA [Suspect]
     Indication: PSYCHOTIC DISORDER
     Route: 030
     Dates: start: 20130124
  2. INVEGA SUSTENNA [Suspect]
     Indication: SCHIZOPHRENIA
     Route: 030
     Dates: start: 20130124
  3. GEODON [Concomitant]
     Indication: PSYCHOTIC DISORDER
     Route: 065
     Dates: start: 20120904
  4. COGENTIN [Concomitant]
     Indication: EXTRAPYRAMIDAL DISORDER
     Route: 065
     Dates: start: 20130110
  5. PIOGLITAZONE [Concomitant]
     Indication: DIABETES MELLITUS
     Route: 065
     Dates: start: 20130123, end: 20130124
  6. GLIMEPIRIDE [Concomitant]
     Indication: DIABETES MELLITUS
     Route: 065
     Dates: start: 20130122, end: 20130417
  7. METFORMIN [Concomitant]
     Indication: DIABETES MELLITUS
     Route: 065
     Dates: start: 20130117
  8. LISINOPRIL [Concomitant]
     Indication: HYPERTENSION
     Route: 065
     Dates: start: 20130111, end: 20130430
  9. FENOFIBRATE [Concomitant]
     Indication: BLOOD CHOLESTEROL DECREASED
     Route: 065
     Dates: start: 20130110, end: 20130424
  10. ACETYL SALICYLIC ACID [Concomitant]
     Indication: ANALGESIC INTERVENTION SUPPORTIVE THERAPY
     Route: 065
     Dates: start: 20130110, end: 20130417
  11. ATRIPLA [Concomitant]
     Indication: PRODUCT USED FOR UNKNOWN INDICATION
     Route: 065
     Dates: start: 20130110, end: 20130417

REACTIONS (2)
  - Rash [Recovered/Resolved]
  - Dehydration [Unknown]
